FAERS Safety Report 10227431 (Version 1)
Quarter: 2014Q2

REPORT INFORMATION
  Report Type: Spontaneous
  Country: US (occurrence: US)
  Receive Date: 20140610
  Receipt Date: 20140610
  Transmission Date: 20141212
  Serious: No
  Sender: FDA-Public Use
  Company Number: US-TEVA-487309USA

PATIENT
  Age: 27 Year
  Sex: Female
  Weight: 74 kg

DRUGS (2)
  1. PLAN B ONE-STEP [Suspect]
     Indication: POST COITAL CONTRACEPTION
     Dosage: 1.5 MILLIGRAM DAILY;
     Route: 048
     Dates: start: 20140601, end: 20140601
  2. GILDESS SE [Concomitant]
     Indication: CONTRACEPTION

REACTIONS (2)
  - Pelvic pain [Not Recovered/Not Resolved]
  - Nausea [Recovered/Resolved]
